FAERS Safety Report 4666285-1 (Version None)
Quarter: 2005Q2

REPORT INFORMATION
  Report Type: 
  Country: None (occurrence: None)
  Receive Date: 20050518
  Receipt Date: 20050502
  Transmission Date: 20051028
  Serious: Yes (Hospitalization)
  Sender: FDA-Public Use
  Company Number: DSA_60483_2005

PATIENT
  Age: 63 Year
  Sex: Female

DRUGS (11)
  1. DIHYDROERGOTAMINE MESYLATE [Suspect]
     Dosage: 0.5 MG QDAY
  2. DIHYDROERGOTAMINE MESYLATE [Suspect]
     Dosage: DF
  3. CAFFEINE [Suspect]
     Indication: HEADACHE
     Dosage: 40 G QDAY
  4. CAFFEINE [Suspect]
     Indication: NAUSEA
     Dosage: 40 G QDAY
  5. CAFFEINE [Suspect]
     Indication: PHOTOPHOBIA
     Dosage: 40 G QDAY
  6. PROPHYPHENAZONE [Suspect]
     Indication: HEADACHE
     Dosage: 175 MG QDAY
  7. PROPHYPHENAZONE [Suspect]
     Indication: NAUSEA
     Dosage: 175 MG QDAY
  8. PROPHYPHENAZONE [Suspect]
     Indication: PHOTOPHOBIA
     Dosage: 175 MG QDAY
  9. BISPHOSPHONATES [Concomitant]
  10. ENALAPRIL MALEATE [Concomitant]
  11. HYDROCHLOROTHIAZIDE [Concomitant]

REACTIONS (8)
  - ABNORMAL BEHAVIOUR [None]
  - ANXIETY [None]
  - CEREBRAL ISCHAEMIA [None]
  - DISORIENTATION [None]
  - GLOBAL AMNESIA [None]
  - HYPERTENSION [None]
  - MEMORY IMPAIRMENT [None]
  - NERVOUSNESS [None]
